FAERS Safety Report 11475356 (Version 1)
Quarter: 2015Q3

REPORT INFORMATION
  Report Type: Spontaneous
  Country: US (occurrence: None)
  Receive Date: 20150908
  Receipt Date: 20150908
  Transmission Date: 20151125
  Serious: No
  Sender: FDA-Public Use
  Company Number: None

PATIENT
  Age: 58 Year
  Sex: Female
  Weight: 90.72 kg

DRUGS (7)
  1. ESOMEPRAZOLE [Concomitant]
     Active Substance: ESOMEPRAZOLE
  2. LEVOTHYROXINE. [Concomitant]
     Active Substance: LEVOTHYROXINE
  3. FLONASE SPRAY [Concomitant]
  4. HUMIRA [Suspect]
     Active Substance: ADALIMUMAB
     Indication: PSORIASIS
     Dosage: 1 EVERY OTHER WEEK GIVEN INTO/UNDER THE SKIN
     Dates: start: 20150805, end: 20150829
  5. ESCITALOPRAM [Concomitant]
     Active Substance: ESCITALOPRAM OXALATE
  6. IBUPROFEN. [Concomitant]
     Active Substance: IBUPROFEN
  7. LORADITINE [Concomitant]

REACTIONS (1)
  - Hot flush [None]

NARRATIVE: CASE EVENT DATE: 20150820
